FAERS Safety Report 11177430 (Version 2)
Quarter: 2015Q3

REPORT INFORMATION
  Report Type: Spontaneous
  Country: US (occurrence: US)
  Receive Date: 20150610
  Receipt Date: 20150717
  Transmission Date: 20151125
  Serious: Yes (Other)
  Sender: FDA-Public Use
  Company Number: US-PFIZER INC-2015190279

PATIENT
  Age: 55 Year
  Sex: Male
  Weight: 159 kg

DRUGS (2)
  1. NEURONTIN [Suspect]
     Active Substance: GABAPENTIN
     Indication: NEUROPATHY PERIPHERAL
     Dosage: 300 MG, 3X/DAY
     Dates: start: 20150602, end: 20150603
  2. NEURONTIN [Suspect]
     Active Substance: GABAPENTIN
     Indication: HYPERSENSITIVITY

REACTIONS (3)
  - Diabetes mellitus [Unknown]
  - Disease progression [Unknown]
  - Diplopia [Unknown]

NARRATIVE: CASE EVENT DATE: 20150603
